FAERS Safety Report 17954225 (Version 1)
Quarter: 2020Q2

REPORT INFORMATION
  Report Type: Spontaneous
  Country: US (occurrence: US)
  Receive Date: 20200629
  Receipt Date: 20200629
  Transmission Date: 20200714
  Serious: Yes (Hospitalization, Other)
  Sender: FDA-Public Use
  Company Number: US-AUROBINDO-AUR-APL-2020-030751

PATIENT
  Age: 52 Year
  Sex: Male

DRUGS (11)
  1. TICAGRELOR. [Concomitant]
     Active Substance: TICAGRELOR
     Indication: ELECTROCARDIOGRAM ST SEGMENT ELEVATION
     Dosage: 180 MILLIGRAM
     Route: 065
  2. ATORVASTATIN [Concomitant]
     Active Substance: ATORVASTATIN
     Indication: ELECTROCARDIOGRAM ST SEGMENT ELEVATION
     Dosage: 80 MILLIGRAM
     Route: 065
  3. CALCIUM CHLORIDE. [Concomitant]
     Active Substance: CALCIUM CHLORIDE
     Indication: VENTRICULAR FIBRILLATION
     Dosage: 1 GRAM
     Route: 065
  4. TIROFIBAN [Suspect]
     Active Substance: TIROFIBAN
     Indication: VENTRICULAR FIBRILLATION
     Dosage: 25 MICROGRAM/KILOGRAM
     Route: 042
  5. ASPIRIN. [Concomitant]
     Active Substance: ASPIRIN
     Indication: ELECTROCARDIOGRAM ST SEGMENT ELEVATION
     Dosage: 325 MILLIGRAM
     Route: 065
  6. AMIODARONE [Concomitant]
     Active Substance: AMIODARONE
     Indication: VENTRICULAR FIBRILLATION
     Dosage: 300 MILLIGRAM
     Route: 040
  7. ESMOLOL [Suspect]
     Active Substance: ESMOLOL HYDROCHLORIDE
     Indication: VENTRICULAR FIBRILLATION
     Dosage: 500 MICROGRAM/KILOGRAM (35 MG)
     Route: 040
  8. NITROGLYCERIN. [Concomitant]
     Active Substance: NITROGLYCERIN
     Indication: CHEST PAIN
     Dosage: UNK
     Route: 060
  9. SODIUM BICARBONATE. [Concomitant]
     Active Substance: SODIUM BICARBONATE
     Indication: VENTRICULAR FIBRILLATION
     Dosage: 50 MILLIEQUIVALENT,20 DOSES
     Route: 065
  10. BIVALIRUDIN. [Suspect]
     Active Substance: BIVALIRUDIN
     Indication: VENTRICULAR FIBRILLATION
     Dosage: 0.75 MILLIGRAM/KILOGRAM
     Route: 042
  11. EPINEPHRINE. [Concomitant]
     Active Substance: EPINEPHRINE
     Indication: VENTRICULAR FIBRILLATION
     Dosage: 1 MILLIGRAM,EVERY 3-5 MINUTES 9 ROUNDS
     Route: 042

REACTIONS (4)
  - Atrial fibrillation [Recovered/Resolved]
  - Pneumonia aspiration [Recovered/Resolved]
  - Ischaemic cardiomyopathy [Recovered/Resolved]
  - Coronary artery occlusion [Recovered/Resolved]
